FAERS Safety Report 8950809 (Version 1)
Quarter: 2012Q4

REPORT INFORMATION
  Report Type: Spontaneous
  Country: US (occurrence: None)
  Receive Date: 20121204
  Receipt Date: 20121204
  Transmission Date: 20130627
  Serious: Yes (Other)
  Sender: FDA-Public Use
  Company Number: None

PATIENT
  Age: 65 Year
  Sex: Male
  Weight: 77.11 kg

DRUGS (1)
  1. AVODART [Suspect]
     Indication: ENLARGED PROSTATE

REACTIONS (1)
  - Depression [None]
